FAERS Safety Report 8975951 (Version 2)
Quarter: 2012Q4

REPORT INFORMATION
  Report Type: Report from Study
  Country: JP (occurrence: JP)
  Receive Date: 20121219
  Receipt Date: 20121228
  Transmission Date: 20130627
  Serious: Yes (Other)
  Sender: FDA-Public Use
  Company Number: JP-GLAXOSMITHKLINE-B0853466A

PATIENT
  Sex: Female

DRUGS (10)
  1. REVOLADE [Suspect]
     Indication: IDIOPATHIC THROMBOCYTOPENIC PURPURA
     Route: 048
     Dates: start: 20110711, end: 20110724
  2. REVOLADE [Suspect]
     Indication: IDIOPATHIC THROMBOCYTOPENIC PURPURA
     Route: 048
     Dates: start: 20110725, end: 20110807
  3. REVOLADE [Suspect]
     Indication: IDIOPATHIC THROMBOCYTOPENIC PURPURA
     Route: 048
     Dates: start: 20110808
  4. MEVALOTIN [Concomitant]
     Route: 048
  5. BONALON [Concomitant]
     Route: 048
  6. NORVASC [Concomitant]
     Route: 048
  7. MYSLEE [Concomitant]
     Route: 048
  8. PRAVASTATIN SODIUM [Concomitant]
     Route: 048
  9. ALENDRONATE [Concomitant]
     Route: 048
  10. AMLODIPINE [Concomitant]
     Route: 048

REACTIONS (1)
  - Cerebral infarction [Unknown]
